FAERS Safety Report 12369231 (Version 6)
Quarter: 2016Q3

REPORT INFORMATION
  Report Type: Report from Study
  Country: NL (occurrence: NL)
  Receive Date: 20160513
  Receipt Date: 20160718
  Transmission Date: 20161109
  Serious: Yes (Hospitalization)
  Sender: FDA-Public Use
  Company Number: PHHO2016NL006810

PATIENT
  Age: 53 Year
  Sex: Female
  Weight: 87.1 kg

DRUGS (9)
  1. CODEINE [Concomitant]
     Active Substance: CODEINE
     Indication: COUGH
     Dosage: 20 MG, Q8H
     Route: 048
     Dates: start: 20160508
  2. MACROGOL [Concomitant]
     Active Substance: POLYETHYLENE GLYCOLS
     Indication: CONSTIPATION PROPHYLAXIS
     Dosage: 1 G, Q8H
     Route: 048
     Dates: start: 20160509
  3. TRAMETINIB [Suspect]
     Active Substance: TRAMETINIB
     Dosage: 1.5 MG, QD
     Route: 048
     Dates: start: 20160523
  4. PARACETAMOL [Concomitant]
     Active Substance: ACETAMINOPHEN
     Indication: PAIN
     Dosage: 1000 MG, Q6H
     Route: 042
     Dates: start: 20160508
  5. DABRAFENIB [Suspect]
     Active Substance: DABRAFENIB
     Dosage: 100 MG, BID
     Route: 048
     Dates: start: 20160523
  6. DABRAFENIB [Suspect]
     Active Substance: DABRAFENIB
     Indication: HEPATOBILIARY CANCER
     Dosage: UNK
     Route: 048
     Dates: start: 20160418
  7. TRAMETINIB [Suspect]
     Active Substance: TRAMETINIB
     Indication: HEPATOBILIARY CANCER
     Dosage: UNK
     Route: 048
     Dates: start: 20160418
  8. FUROSEMIDE. [Concomitant]
     Active Substance: FUROSEMIDE
     Indication: OEDEMA PERIPHERAL
     Dosage: 40 MG, QD
     Route: 048
     Dates: start: 20160508
  9. IPRATROPIUM [Concomitant]
     Active Substance: IPRATROPIUM
     Indication: COUGH
     Dosage: 20 UG AEROSOL, Q8H
     Route: 055
     Dates: start: 20160510

REACTIONS (1)
  - Transaminases increased [Recovered/Resolved]

NARRATIVE: CASE EVENT DATE: 20160502
